FAERS Safety Report 19137791 (Version 1)
Quarter: 2021Q2

REPORT INFORMATION
  Report Type: Spontaneous
  Country: CO (occurrence: CO)
  Receive Date: 20210415
  Receipt Date: 20210415
  Transmission Date: 20210717
  Serious: Yes (Other)
  Sender: FDA-Public Use
  Company Number: CO-AMGEN-COLSP2021031898

PATIENT
  Age: 30 Year
  Sex: Male

DRUGS (1)
  1. ENBREL [Suspect]
     Active Substance: ETANERCEPT
     Indication: ANKYLOSING SPONDYLITIS
     Dosage: 50 MG, ONE EVERY 8 DAYS
     Route: 058
     Dates: start: 202003, end: 202011

REACTIONS (3)
  - Drug ineffective [Unknown]
  - Uveitis [Unknown]
  - Off label use [Unknown]

NARRATIVE: CASE EVENT DATE: 2020
